FAERS Safety Report 6268546-1 (Version None)
Quarter: 2009Q3

REPORT INFORMATION
  Report Type: 
  Country: None (occurrence: None)
  Receive Date: 20090713
  Receipt Date: 20090713
  Transmission Date: 20100115
  Serious: Yes (Other)
  Sender: FDA-Public Use
  Company Number: None

PATIENT
  Age: 57 Year
  Sex: Female
  Weight: 90.7194 kg

DRUGS (2)
  1. XOPENEX HFA [Suspect]
     Indication: ASTHMA
     Dosage: 2 PUFFS 4XDAY PO
     Route: 048
     Dates: start: 20090401, end: 20090615
  2. PROVENTIL-HFA [Suspect]
     Indication: BRONCHIAL HYPERREACTIVITY
     Dosage: 2 PUFFS 4XDAY PO
     Route: 048
     Dates: start: 20090615, end: 20090710

REACTIONS (7)
  - ASTHMA [None]
  - DRUG INEFFECTIVE [None]
  - DYSPNOEA [None]
  - GAIT DISTURBANCE [None]
  - HEADACHE [None]
  - ORAL INFECTION [None]
  - PHARYNGITIS [None]
